FAERS Safety Report 18741259 (Version 6)
Quarter: 2021Q2

REPORT INFORMATION
  Report Type: Report from Study
  Country: ES (occurrence: ES)
  Receive Date: 20210114
  Receipt Date: 20210430
  Transmission Date: 20210717
  Serious: Yes (Hospitalization)
  Sender: FDA-Public Use
  Company Number: ES-PFIZER INC-2021022173

PATIENT
  Age: 74 Year
  Sex: Male
  Weight: 76 kg

DRUGS (14)
  1. METFORMINE [METFORMIN HYDROCHLORIDE] [Concomitant]
     Active Substance: METFORMIN HYDROCHLORIDE
     Indication: DIABETES MELLITUS
     Dosage: 1000 MG
     Dates: start: 20040401
  2. 5?FLUOROURACIL [FLUOROURACIL] [Suspect]
     Active Substance: FLUOROURACIL
     Indication: GASTRIC CANCER
     Dosage: 4680 MG, CYCLIC(ONCE IN EVERY TWO WEEKS)
     Route: 042
     Dates: start: 20200722
  3. 5?FLUOROURACIL [FLUOROURACIL] [Suspect]
     Active Substance: FLUOROURACIL
     Dosage: 4680 MG, CYCLIC(ONCE IN EVERY TWO WEEKS)
     Route: 042
     Dates: start: 20201229
  4. IRBESARTAN. [Concomitant]
     Active Substance: IRBESARTAN
     Indication: HYPERTENSION
     Dosage: 75 MG
     Dates: start: 20200701
  5. VESOMNI [Concomitant]
     Active Substance: SOLIFENACIN\TAMSULOSIN
     Indication: BENIGN PROSTATIC HYPERPLASIA
     Dosage: 6 MG
     Dates: start: 20010101
  6. DOCETAXEL. [Suspect]
     Active Substance: DOCETAXEL
     Indication: GASTRIC CANCER
     Dosage: 90 MG, CYCLIC(ONCE IN EVERY TWO WEEKS)
     Route: 042
     Dates: start: 20200722
  7. CALCIUM FOLINATE [Suspect]
     Active Substance: LEUCOVORIN CALCIUM
     Indication: GASTRIC CANCER
     Dosage: 720 MG, CYCLIC(ONCE IN EVERY TWO WEEKS)
     Route: 042
     Dates: start: 20200722
  8. CALCIUM FOLINATE [Suspect]
     Active Substance: LEUCOVORIN CALCIUM
     Dosage: 720 MG, CYCLIC(ONCE IN EVERY TWO WEEKS)
     Route: 042
     Dates: start: 20201229
  9. DOCETAXEL. [Suspect]
     Active Substance: DOCETAXEL
     Dosage: 90 MG, CYCLIC(ONCE IN EVERY TWO WEEKS)
     Route: 042
     Dates: start: 20201229
  10. OXALIPLATIN. [Suspect]
     Active Substance: OXALIPLATIN
     Indication: GASTRIC CANCER
     Dosage: 150 MG, CYCLIC (ONCE IN EVERY TWO WEEKS)
     Route: 042
     Dates: start: 20200722
  11. SITAGLIPTINE [Concomitant]
     Active Substance: SITAGLIPTIN
     Indication: DIABETES MELLITUS
     Dosage: 50 MG
     Dates: start: 20040101
  12. AVELUMAB [Suspect]
     Active Substance: AVELUMAB
     Dosage: 720 MG, CYCLIC/ (ONCE IN EVERY TWO WEEKS)
     Route: 042
     Dates: start: 20201229
  13. AVELUMAB [Suspect]
     Active Substance: AVELUMAB
     Indication: GASTRIC CANCER
     Dosage: 720 MG, Q2WEEK (ONCE IN EVERY TWO WEEKS)
     Route: 042
     Dates: start: 20200722
  14. OXALIPLATIN. [Suspect]
     Active Substance: OXALIPLATIN
     Dosage: 150 MG, CYCLIC (ONCE IN EVERY TWO WEEKS)
     Route: 042
     Dates: start: 20201229

REACTIONS (1)
  - Pneumothorax [Recovered/Resolved]

NARRATIVE: CASE EVENT DATE: 20210118
